FAERS Safety Report 4725010-6 (Version None)
Quarter: 2005Q3

REPORT INFORMATION
  Report Type: 
  Country: None (occurrence: None)
  Receive Date: 20050722
  Receipt Date: 20050708
  Transmission Date: 20060218
  Serious: Yes (Life-Threatening, Hospitalization, Other)
  Sender: FDA-Public Use
  Company Number: 2005RL000079

PATIENT
  Age: 65 Year
  Sex: Female

DRUGS (8)
  1. PROPAFENONE HCL [Suspect]
     Indication: ATRIAL FIBRILLATION
     Dosage: 300 MG, TID; PO
     Route: 048
     Dates: start: 19910101, end: 20050619
  2. PROPAFENONE HCL [Suspect]
     Indication: VENTRICULAR TACHYCARDIA
     Dosage: 300 MG, TID; PO
     Route: 048
     Dates: start: 19910101, end: 20050619
  3. DIGITALIS [Concomitant]
  4. LISINOPRIL [Concomitant]
  5. NOVOTHYRAL [Concomitant]
  6. PREDNISOLONE [Concomitant]
  7. PROGESTERONE [Concomitant]
  8. STAZYNOVA [Concomitant]

REACTIONS (13)
  - ATRIAL FIBRILLATION [None]
  - BLOOD PRESSURE IMMEASURABLE [None]
  - DEHYDRATION [None]
  - EMOTIONAL DISORDER [None]
  - FALL [None]
  - HEART RATE DECREASED [None]
  - HUMERUS FRACTURE [None]
  - HYPOTENSION [None]
  - NERVOUSNESS [None]
  - PULSE ABSENT [None]
  - SYNCOPE [None]
  - TRAUMATIC FRACTURE [None]
  - VENTRICULAR TACHYCARDIA [None]
